FAERS Safety Report 25061572 (Version 1)
Quarter: 2025Q1

REPORT INFORMATION
  Report Type: Spontaneous
  Country: US (occurrence: US)
  Receive Date: 20250311
  Receipt Date: 20250311
  Transmission Date: 20250408
  Serious: No
  Sender: AUROBINDO
  Company Number: US-AUROBINDO-AUR-APL-2024-016591

PATIENT
  Age: 53 Year
  Sex: Male
  Weight: 78.4 kg

DRUGS (2)
  1. AMOXICILLIN\CLAVULANATE POTASSIUM [Suspect]
     Active Substance: AMOXICILLIN\CLAVULANATE POTASSIUM
     Indication: Sinusitis
     Route: 065
     Dates: start: 20240313, end: 20240323
  2. PROBIOTICS NOS [Concomitant]
     Active Substance: PROBIOTICS NOS
     Indication: Product used for unknown indication
     Route: 065

REACTIONS (4)
  - Gingival disorder [Recovering/Resolving]
  - Tooth disorder [Recovering/Resolving]
  - Toothache [Recovering/Resolving]
  - Dental plaque [Recovering/Resolving]

NARRATIVE: CASE EVENT DATE: 20240314
